FAERS Safety Report 4830554-2 (Version None)
Quarter: 2005Q4

REPORT INFORMATION
  Report Type: 
  Country: None (occurrence: None)
  Receive Date: 20051115
  Receipt Date: 20051103
  Transmission Date: 20060501
  Serious: Yes (Hospitalization)
  Sender: FDA-Public Use
  Company Number: 2003IM000219

PATIENT
  Age: 49 Year
  Sex: Female
  Weight: 75 kg

DRUGS (11)
  1. INTERFERON GAMMA-1B [Suspect]
     Indication: OVARIAN CANCER
     Dosage: 100 UG, TIW, SUBCUTANEOUS
     Route: 058
     Dates: start: 20030213, end: 20030215
  2. CARBOPLATIN [Suspect]
     Dosage: 726 MG, Q3W, INTRAVENOUS
     Route: 042
     Dates: start: 20030213, end: 20030213
  3. PACLITAXEL [Suspect]
     Dosage: 319 MG, Q3W, INTRAVENOUS
     Route: 042
     Dates: start: 20030213, end: 20030213
  4. MULTI-VITAMINS [Concomitant]
  5. ZOLOFT [Concomitant]
  6. CALCIUM GLUCONATE [Concomitant]
  7. VITAMIN B-12 [Concomitant]
  8. POTASSIUM [Concomitant]
  9. MULTI-B [Concomitant]
  10. ACCOLADE [Concomitant]
  11. IMOVANE [Concomitant]

REACTIONS (12)
  - ABDOMINAL PAIN [None]
  - ANAEMIA [None]
  - ARTHRALGIA [None]
  - DEHYDRATION [None]
  - DIARRHOEA [None]
  - DISEASE PROGRESSION [None]
  - FATIGUE [None]
  - KLEBSIELLA INFECTION [None]
  - MYALGIA [None]
  - NAUSEA [None]
  - VOMITING [None]
  - YELLOW SKIN [None]
